FAERS Safety Report 13151415 (Version 1)
Quarter: 2017Q1

REPORT INFORMATION
  Report Type: Spontaneous
  Country: US (occurrence: US)
  Receive Date: 20170125
  Receipt Date: 20170125
  Transmission Date: 20170428
  Serious: No
  Sender: FDA-Public Use
  Company Number: US-KADMON PHARMACEUTICALS, LLC-KAD201512-004729

PATIENT
  Age: 60 Year
  Sex: Female
  Weight: 94.34 kg

DRUGS (1)
  1. RIBAVIRIN. [Suspect]
     Active Substance: RIBAVIRIN
     Indication: HEPATITIS C
     Dosage: TABLET
     Route: 048
     Dates: start: 2013

REACTIONS (7)
  - Weight increased [Unknown]
  - Hypertension [Unknown]
  - Renal disorder [Unknown]
  - Depression [Unknown]
  - Type 2 diabetes mellitus [Unknown]
  - Panic attack [Unknown]
  - Anxiety [Unknown]
